FAERS Safety Report 11559728 (Version 1)
Quarter: 2015Q3

REPORT INFORMATION
  Report Type: Spontaneous
  Country: US (occurrence: US)
  Receive Date: 20150928
  Receipt Date: 20150928
  Transmission Date: 20151125
  Serious: Yes (Other)
  Sender: FDA-Public Use
  Company Number: US-GLAXOSMITHKLINE-US2015GSK112332

PATIENT
  Sex: Male

DRUGS (2)
  1. ACITRETIN. [Suspect]
     Active Substance: ACITRETIN
     Indication: SKIN CANCER
     Dosage: UNK
     Dates: start: 20150731
  2. SORIATANE [Suspect]
     Active Substance: ACITRETIN
     Indication: SKIN CANCER
     Dosage: UNK
     Dates: start: 2013

REACTIONS (5)
  - Lymphadenopathy [Unknown]
  - Off label use [Not Recovered/Not Resolved]
  - Malignant neoplasm progression [Unknown]
  - Lymphadenectomy [Unknown]
  - Neuroendocrine carcinoma of the skin [Unknown]

NARRATIVE: CASE EVENT DATE: 2013
